FAERS Safety Report 10919238 (Version 1)
Quarter: 2015Q1

REPORT INFORMATION
  Report Type: Spontaneous
  Country: CN (occurrence: CN)
  Receive Date: 20150316
  Receipt Date: 20150316
  Transmission Date: 20150721
  Serious: Yes (Hospitalization)
  Sender: FDA-Public Use
  Company Number: PHHY2015CN027921

PATIENT
  Age: 63 Year
  Sex: Female

DRUGS (1)
  1. PREDNISONE. [Suspect]
     Active Substance: PREDNISONE
     Indication: PULMONARY FIBROSIS
     Route: 065

REACTIONS (6)
  - Back pain [Recovering/Resolving]
  - Tenderness [Recovering/Resolving]
  - Osteoporosis [Recovering/Resolving]
  - Activities of daily living impaired [Recovering/Resolving]
  - Spinal fracture [Recovering/Resolving]
  - Spinal compression fracture [Recovering/Resolving]
